FAERS Safety Report 9089538 (Version 1)
Quarter: 2013Q1

REPORT INFORMATION
  Report Type: Report from Study
  Country: US (occurrence: US)
  Receive Date: 20130218
  Receipt Date: 20130218
  Transmission Date: 20140127
  Serious: No
  Sender: FDA-Public Use
  Company Number: US-ABBOTT-12P-163-0950828-00

PATIENT
  Sex: Male
  Weight: 89.89 kg

DRUGS (2)
  1. SIMCOR 500MG/40MG [Suspect]
     Indication: BLOOD TRIGLYCERIDES ABNORMAL
     Dosage: 500/40MG TAKING BETWEEN 12 MIDNIGHT-1AM
     Dates: start: 20120606
  2. VITAMINS [Concomitant]
     Indication: PRODUCT USED FOR UNKNOWN INDICATION

REACTIONS (3)
  - Arthralgia [Not Recovered/Not Resolved]
  - Dizziness [Recovered/Resolved]
  - Arthralgia [Unknown]
